FAERS Safety Report 8964206 (Version 2)
Quarter: 2012Q4

REPORT INFORMATION
  Report Type: 
  Country: US (occurrence: US)
  Receive Date: 20121214
  Receipt Date: 20121228
  Transmission Date: 20130627
  Serious: Yes (Hospitalization)
  Sender: FDA-Public Use
  Company Number: US-PFIZER INC-2012312917

PATIENT
  Sex: Female

DRUGS (2)
  1. SUTENT [Suspect]
     Dosage: UNK
  2. OXYCONTIN [Concomitant]
     Dosage: one tab Q12 hrs

REACTIONS (3)
  - Gastroenteritis viral [Unknown]
  - Asthenia [Unknown]
  - Rash generalised [Recovering/Resolving]
